FAERS Safety Report 6854858-7 (Version None)
Quarter: 2010Q3

REPORT INFORMATION
  Report Type: 
  Country: None (occurrence: None)
  Receive Date: 20100717
  Receipt Date: 20080223
  Transmission Date: 20110219
  Serious: No
  Sender: FDA-Public Use
  Company Number: US-PFIZER INC-2007104221

PATIENT
  Sex: Female
  Weight: 68 kg

DRUGS (1)
  1. CHANTIX [Suspect]
     Dates: start: 20070824, end: 20071123

REACTIONS (7)
  - ANGER [None]
  - DECREASED INTEREST [None]
  - DRUG DEPENDENCE [None]
  - EMOTIONAL DISORDER [None]
  - FEELING ABNORMAL [None]
  - HYPERSOMNIA [None]
  - RESTLESSNESS [None]
